FAERS Safety Report 11387501 (Version 1)
Quarter: 2015Q3

REPORT INFORMATION
  Report Type: Report from Study
  Country: US (occurrence: US)
  Receive Date: 20150817
  Receipt Date: 20150817
  Transmission Date: 20151125
  Serious: Yes (Hospitalization)
  Sender: FDA-Public Use
  Company Number: US-BIOGENIDEC-2015BI113207

PATIENT
  Age: 51 Year
  Sex: Female

DRUGS (6)
  1. EQ IBUPROFEN CAPLET [Concomitant]
     Indication: PRODUCT USED FOR UNKNOWN INDICATION
  2. PARAGARD  T 380-A IUD [Concomitant]
     Indication: PRODUCT USED FOR UNKNOWN INDICATION
  3. TECFIDERA [Suspect]
     Active Substance: DIMETHYL FUMARATE
     Indication: MULTIPLE SCLEROSIS
     Route: 048
     Dates: start: 201405
  4. TYLENOL TABLET [Concomitant]
     Indication: PRODUCT USED FOR UNKNOWN INDICATION
  5. CVS MEGA MULTIVITAMIN TAB [Concomitant]
     Indication: PRODUCT USED FOR UNKNOWN INDICATION
  6. CVS VITAMIN D3 5,000 UNIT SFGL [Concomitant]
     Indication: PRODUCT USED FOR UNKNOWN INDICATION

REACTIONS (3)
  - Bladder perforation [Recovered/Resolved]
  - Vesical fistula [Recovered/Resolved]
  - Medical device complication [Recovered/Resolved]

NARRATIVE: CASE EVENT DATE: 20150721
